FAERS Safety Report 4977215-7 (Version None)
Quarter: 2006Q2

REPORT INFORMATION
  Report Type: 
  Country: None (occurrence: None)
  Receive Date: 20060419
  Receipt Date: 20050919
  Transmission Date: 20061013
  Serious: Yes (Hospitalization, Other)
  Sender: FDA-Public Use
  Company Number: US-MERCK-0509USA02944

PATIENT
  Age: 63 Year
  Sex: Female
  Weight: 82 kg

DRUGS (38)
  1. VIOXX [Suspect]
     Indication: MONARTHRITIS
     Route: 048
     Dates: start: 19991104, end: 20040629
  2. VIOXX [Suspect]
     Route: 048
     Dates: start: 19991104, end: 20040629
  3. VIOXX [Suspect]
     Indication: KNEE ARTHROPLASTY
     Route: 048
     Dates: start: 19991104, end: 20040629
  4. VIOXX [Suspect]
     Route: 048
     Dates: start: 19991104, end: 20040629
  5. AMOXICILLIN [Concomitant]
     Route: 065
     Dates: start: 20020601, end: 20041001
  6. BIAXIN [Concomitant]
     Route: 065
     Dates: start: 19990101, end: 20020101
  7. CEFTIN [Concomitant]
     Route: 065
     Dates: start: 19990501, end: 20020101
  8. CIPRO [Concomitant]
     Route: 065
     Dates: start: 20000201
  9. COZAAR [Concomitant]
     Route: 048
     Dates: start: 19990101, end: 20041201
  10. CYCLOBENZAPRINE HYDROCHLORIDE [Concomitant]
     Route: 065
     Dates: start: 20030501, end: 20040601
  11. ELIMITE [Concomitant]
     Route: 065
     Dates: start: 20010601
  12. ENTEX (NEW FORMULA) [Concomitant]
     Route: 065
     Dates: start: 20020901, end: 20021101
  13. ESTRADERM [Concomitant]
     Route: 065
     Dates: start: 19990101, end: 19991101
  14. FEMHRT [Concomitant]
     Route: 065
     Dates: start: 20010501, end: 20040601
  15. GUAIFENESIN [Concomitant]
     Route: 065
     Dates: start: 20020901, end: 20021101
  16. HYDROCODONE BITARTRATE [Concomitant]
     Route: 065
     Dates: start: 20020801, end: 20041201
  17. LEVBID [Concomitant]
     Route: 065
     Dates: start: 20000201
  18. HYDROCORTISONE AND LIDOCAINE [Concomitant]
     Route: 065
     Dates: start: 20031001
  19. LOMOTIL [Concomitant]
     Route: 065
     Dates: start: 20020201
  20. NASONEX [Concomitant]
     Route: 065
     Dates: start: 19991201, end: 20040601
  21. NASONEX [Concomitant]
     Route: 065
     Dates: start: 20000101, end: 20041101
  22. OMEPRAZOLE [Concomitant]
     Route: 065
     Dates: start: 20030101, end: 20041001
  23. PRILOSEC [Concomitant]
     Route: 065
     Dates: start: 20010301, end: 20021101
  24. PROVERA [Concomitant]
     Route: 065
     Dates: start: 19990201, end: 20010401
  25. QUININE SULFATE [Concomitant]
     Route: 065
     Dates: start: 20000401, end: 20041201
  26. RHINOCORT [Concomitant]
     Route: 065
     Dates: start: 20000601, end: 20010701
  27. SKELAXIN [Concomitant]
     Route: 065
     Dates: start: 20030501
  28. SYNTHROID [Concomitant]
     Route: 065
     Dates: start: 19990201, end: 20040801
  29. TEQUIN [Concomitant]
     Route: 065
     Dates: start: 20001001, end: 20021101
  30. TRAMADOL HYDROCHLORIDE [Concomitant]
     Route: 065
     Dates: start: 20020901, end: 20040601
  31. TRIAMCINOLONE [Concomitant]
     Route: 065
     Dates: start: 20010501
  32. ULTRAM [Concomitant]
     Route: 065
     Dates: start: 20020201, end: 20030101
  33. VICODIN [Concomitant]
     Route: 065
     Dates: start: 19990101, end: 20020801
  34. VIVELLE [Concomitant]
     Route: 065
     Dates: start: 19990101, end: 20010301
  35. XANAX [Concomitant]
     Route: 065
     Dates: start: 19990101, end: 20010601
  36. XYLOCAINE [Concomitant]
     Route: 065
     Dates: start: 20020101
  37. ZYRTEC [Concomitant]
     Route: 065
     Dates: start: 20010101, end: 20040601
  38. NORVASC [Concomitant]
     Route: 065

REACTIONS (13)
  - ALANINE AMINOTRANSFERASE INCREASED [None]
  - ARTHROPATHY [None]
  - BLOOD GLUCOSE INCREASED [None]
  - CEREBRAL ISCHAEMIA [None]
  - CEREBROVASCULAR ACCIDENT [None]
  - DEPRESSION [None]
  - GASTROOESOPHAGEAL REFLUX DISEASE [None]
  - GLYCOSYLATED HAEMOGLOBIN INCREASED [None]
  - HYPERTENSION [None]
  - OSTEOARTHRITIS [None]
  - PSEUDOMONAS INFECTION [None]
  - STRESS [None]
  - URINARY TRACT INFECTION [None]
